FAERS Safety Report 22123369 (Version 1)
Quarter: 2023Q1

REPORT INFORMATION
  Report Type: Spontaneous
  Country: SE (occurrence: SE)
  Receive Date: 20230322
  Receipt Date: 20230322
  Transmission Date: 20230417
  Serious: Yes (Congenital Anomaly, Other)
  Sender: FDA-Public Use
  Company Number: SE-MPA-2023-001739

PATIENT
  Sex: Male
  Weight: 3 kg

DRUGS (1)
  1. LAMOTRIGINE [Suspect]
     Active Substance: LAMOTRIGINE
     Indication: Bipolar disorder
     Dosage: 150 MILLIGRAM, ONCE A DAY (100 MG X 1, FR?N CA V. 6-8 ?KNING TILL 150 MG X 1)
     Route: 064
     Dates: start: 20120130, end: 20230209

REACTIONS (2)
  - Congenital hand malformation [Not Recovered/Not Resolved]
  - Foetal exposure during pregnancy [Not Recovered/Not Resolved]
